FAERS Safety Report 6393812-9 (Version None)
Quarter: 2009Q4

REPORT INFORMATION
  Report Type: 
  Country: None (occurrence: None)
  Receive Date: 20091008
  Receipt Date: 20090928
  Transmission Date: 20100525
  Serious: Yes (Other)
  Sender: FDA-Public Use
  Company Number: GB-JNJFOC-20090908183

PATIENT
  Age: 56 Year
  Sex: Female

DRUGS (3)
  1. REMICADE [Suspect]
     Indication: RHEUMATOID ARTHRITIS
     Route: 042
     Dates: start: 20020402, end: 20041018
  2. OTHER BIOLOGICS [Suspect]
     Indication: RHEUMATOID ARTHRITIS
  3. AZATHIOPRINE [Concomitant]

REACTIONS (2)
  - PAPILLOMA VIRAL INFECTION [None]
  - VULVAL CANCER STAGE 0 [None]
